FAERS Safety Report 8561888-6 (Version None)
Quarter: 2012Q3

REPORT INFORMATION
  Report Type: 
  Country: None (occurrence: None)
  Receive Date: 20120802
  Receipt Date: 20120720
  Transmission Date: 20120928
  Serious: No
  Sender: FDA-Public Use
  Company Number: US-AMGEN-USASP2011015485

PATIENT
  Age: 60 Year
  Sex: Female

DRUGS (10)
  1. PLAQUENIL [Concomitant]
     Dosage: UNK
     Dates: start: 20060726
  2. MOBIC [Concomitant]
     Dosage: UNK
     Dates: start: 20100901
  3. PROMETHAZINE [Concomitant]
     Dosage: UNK
  4. FERROUS SULFATE TAB [Concomitant]
     Dosage: UNK
  5. ALENDRONATE SODIUM [Concomitant]
     Dosage: UNK
  6. PRILOSEC [Concomitant]
     Dosage: UNK
     Dates: start: 20050401
  7. ENBREL [Suspect]
     Indication: RHEUMATOID ARTHRITIS
     Dosage: 50 MG, QWK
     Dates: start: 20110216
  8. ENBREL [Suspect]
     Indication: AUTOIMMUNE HEPATITIS
  9. VICODIN [Concomitant]
     Dosage: UNK
     Dates: start: 20070403
  10. VITAMIN D [Concomitant]
     Dosage: UNK
     Dates: start: 20100522

REACTIONS (4)
  - NASOPHARYNGITIS [None]
  - SINUSITIS [None]
  - DIARRHOEA [None]
  - FREQUENT BOWEL MOVEMENTS [None]
